FAERS Safety Report 6792411-4 (Version None)
Quarter: 2010Q2

REPORT INFORMATION
  Report Type: 
  Country: None (occurrence: None)
  Receive Date: 20100624
  Receipt Date: 20080912
  Transmission Date: 20101027
  Serious: Yes (Other)
  Sender: FDA-Public Use
  Company Number: US-PFIZER INC-2008064687

PATIENT
  Sex: Female
  Weight: 51 kg

DRUGS (2)
  1. DEPO-SUBQ PROVERA 104 [Suspect]
     Indication: CONTRACEPTION
     Dosage: FIRST INJECTION
     Route: 058
     Dates: start: 20071119, end: 20071119
  2. DEPO-SUBQ PROVERA 104 [Suspect]
     Dosage: LAST INJECTION
     Route: 058
     Dates: start: 20080423, end: 20080423

REACTIONS (1)
  - INJECTION SITE REACTION [None]
